FAERS Safety Report 4347855-7 (Version None)
Quarter: 2004Q2

REPORT INFORMATION
  Report Type: 
  Country: None (occurrence: None)
  Receive Date: 20040422
  Receipt Date: 20040413
  Transmission Date: 20050107
  Serious: Yes (Hospitalization)
  Sender: FDA-Public Use
  Company Number: 19269

PATIENT
  Age: 52 Year
  Sex: Male
  Weight: 275 kg

DRUGS (2)
  1. NIASPAN [Suspect]
     Indication: BLOOD CHOLESTEROL INCREASED
     Dosage: 500 MG QHS PO
     Route: 048
     Dates: start: 20040201, end: 20040226
  2. PRILOSEC [Concomitant]

REACTIONS (8)
  - ACUTE CORONARY SYNDROME [None]
  - CHEST PAIN [None]
  - DIASTOLIC DYSFUNCTION [None]
  - DILATATION ATRIAL [None]
  - DILATATION VENTRICULAR [None]
  - ELECTROCARDIOGRAM ST SEGMENT ELEVATION [None]
  - PALPITATIONS [None]
  - PLEURISY [None]
